FAERS Safety Report 8352643-0 (Version None)
Quarter: 2012Q2

REPORT INFORMATION
  Report Type: 
  Country: None (occurrence: None)
  Receive Date: 20120511
  Receipt Date: 20120508
  Transmission Date: 20120825
  Serious: Yes (Other)
  Sender: FDA-Public Use
  Company Number: NL-AMGEN-NLDSP2012028692

PATIENT
  Sex: Female

DRUGS (2)
  1. PROLIA [Suspect]
     Indication: PRODUCT USED FOR UNKNOWN INDICATION
     Dosage: UNK
     Dates: start: 20120314
  2. POTASSIUM CHLORIDE [Concomitant]
     Indication: POST GASTRIC SURGERY SYNDROME
     Dosage: UNK UNK, 3 TIMES/WK
     Route: 042

REACTIONS (1)
  - HUNGRY BONE SYNDROME [None]
